FAERS Safety Report 14228746 (Version 1)
Quarter: 2017Q4

REPORT INFORMATION
  Report Type: Spontaneous
  Country: US (occurrence: US)
  Receive Date: 20171128
  Receipt Date: 20171128
  Transmission Date: 20180321
  Serious: Yes (Hospitalization)
  Sender: FDA-Public Use
  Company Number: US-B.I. PHARMACEUTICALS,INC./RIDGEFIELD-2017-BI-062798

PATIENT
  Age: 75 Year
  Sex: Male

DRUGS (1)
  1. OFEV [Suspect]
     Active Substance: NINTEDANIB
     Indication: IDIOPATHIC PULMONARY FIBROSIS
     Dosage: 1CAPSULE BID FORM STRENGTH 150 MG; FORMULATION: CAPSULE ADMINISTRATION CORRECT? NR(NOT REPORTED) ACT
     Route: 048
     Dates: start: 20171108, end: 20171116

REACTIONS (5)
  - Dehydration [Unknown]
  - Vomiting [Unknown]
  - Oxygen saturation decreased [Unknown]
  - Hypersomnia [Unknown]
  - Diarrhoea [Unknown]

NARRATIVE: CASE EVENT DATE: 20171117
